FAERS Safety Report 6633963-4 (Version None)
Quarter: 2010Q1

REPORT INFORMATION
  Report Type: 
  Country: None (occurrence: None)
  Receive Date: 20100315
  Receipt Date: 20100302
  Transmission Date: 20100710
  Serious: Yes (Other)
  Sender: FDA-Public Use
  Company Number: NL-EISAI INC.-E3810-03584-SPO-NL

PATIENT
  Age: 62 Year
  Sex: Female

DRUGS (1)
  1. PARIET (RABEPRAZOLE) [Suspect]
     Route: 048

REACTIONS (1)
  - HYPOMAGNESAEMIA [None]
